FAERS Safety Report 11399962 (Version 1)
Quarter: 2015Q3

REPORT INFORMATION
  Report Type: Spontaneous
  Country: US (occurrence: None)
  Receive Date: 20150819
  Receipt Date: 20150819
  Transmission Date: 20151125
  Serious: Yes (Hospitalization)
  Sender: FDA-Public Use
  Company Number: None

PATIENT
  Age: 16 Year
  Sex: Male
  Weight: 54.2 kg

DRUGS (2)
  1. ETOPOSIDE (VP-16) [Suspect]
     Active Substance: ETOPOSIDE
     Dates: end: 20150606
  2. CYTARABINE. [Suspect]
     Active Substance: CYTARABINE
     Dates: end: 20150606

REACTIONS (5)
  - Peritonitis [None]
  - Vomiting [None]
  - Herpes zoster [None]
  - Nausea [None]
  - Flatulence [None]

NARRATIVE: CASE EVENT DATE: 20150720
